FAERS Safety Report 7913045-1 (Version None)
Quarter: 2011Q4

REPORT INFORMATION
  Report Type: 
  Country: None (occurrence: None)
  Receive Date: 20111114
  Receipt Date: 20111109
  Transmission Date: 20120403
  Serious: Yes (Life-Threatening)
  Sender: FDA-Public Use
  Company Number: FR-ASTRAZENECA-2011SE67947

PATIENT
  Age: 29458 Day
  Sex: Female

DRUGS (9)
  1. NOCTAMIDE [Suspect]
     Indication: INSOMNIA
     Route: 048
  2. PRAVASTATIN [Concomitant]
  3. ZOLPIDEM TARTRATE [Suspect]
     Indication: INSOMNIA
     Route: 048
  4. EXFORGE [Concomitant]
  5. TERCIAN [Suspect]
     Indication: DEPRESSION
     Route: 048
  6. NEXIUM [Suspect]
     Route: 048
  7. ATARAX [Suspect]
     Indication: DEPRESSION
     Route: 048
  8. PROZAC [Suspect]
     Indication: DEPRESSION
     Route: 048
  9. PREVISCAN [Concomitant]

REACTIONS (2)
  - COMA [None]
  - HYPOTENSION [None]
